FAERS Safety Report 6387908-5 (Version None)
Quarter: 2009Q4

REPORT INFORMATION
  Report Type: 
  Country: None (occurrence: None)
  Receive Date: 20091005
  Receipt Date: 20090925
  Transmission Date: 20100525
  Serious: Yes (Other)
  Sender: FDA-Public Use
  Company Number: FR-ABBOTT-09P-056-0599204-00

PATIENT
  Age: 63 Year
  Sex: Female

DRUGS (3)
  1. NORVIR [Suspect]
     Indication: HIV INFECTION
     Route: 048
     Dates: start: 20050901, end: 20090904
  2. TRUVADA [Suspect]
     Indication: HIV INFECTION
     Route: 048
     Dates: start: 20050901, end: 20090909
  3. REYATAZ [Suspect]
     Indication: HIV INFECTION
     Route: 048
     Dates: start: 20050901, end: 20090904

REACTIONS (7)
  - BLOOD CREATININE INCREASED [None]
  - BONE FISSURE [None]
  - FANCONI SYNDROME [None]
  - OSTEOMALACIA [None]
  - OSTEOPOROSIS [None]
  - PAIN [None]
  - VITAMIN D DEFICIENCY [None]
